FAERS Safety Report 16656841 (Version 2)
Quarter: 2019Q3

REPORT INFORMATION
  Report Type: Report from Study
  Country: None (occurrence: US)
  Receive Date: 20190801
  Receipt Date: 20190919
  Transmission Date: 20191004
  Serious: Yes (Hospitalization, Other)
  Sender: FDA-Public Use
  Company Number: US-ABBVIE-19K-163-2869998-00

PATIENT
  Age: 81 Year
  Sex: Female
  Weight: 55.84 kg

DRUGS (2)
  1. CREON [Suspect]
     Active Substance: PANCRELIPASE AMYLASE\PANCRELIPASE LIPASE\PANCRELIPASE PROTEASE
     Indication: PANCREATIC ENZYMES DECREASED
     Dosage: EIGHT CAPSULES BY MOUTH BEFORE EATING SIX TIMES DAILY
     Route: 048
     Dates: start: 1991
  2. CREON [Suspect]
     Active Substance: PANCRELIPASE AMYLASE\PANCRELIPASE LIPASE\PANCRELIPASE PROTEASE
     Indication: DIGESTIVE ENZYME DECREASED

REACTIONS (8)
  - Hospitalisation [Unknown]
  - Pyrexia [Recovered/Resolved]
  - Cardiac failure acute [Unknown]
  - Ventricular failure [Unknown]
  - Alopecia [Unknown]
  - Asthenia [Recovering/Resolving]
  - Fatigue [Recovering/Resolving]
  - Liver abscess [Recovered/Resolved]

NARRATIVE: CASE EVENT DATE: 2019
